FAERS Safety Report 6186912-X (Version None)
Quarter: 2009Q2

REPORT INFORMATION
  Report Type: 
  Country: None (occurrence: None)
  Receive Date: 20090508
  Receipt Date: 20090508
  Transmission Date: 20091009
  Serious: Yes (Other)
  Sender: FDA-Public Use
  Company Number: None

PATIENT
  Age: 38 Year
  Sex: Female
  Weight: 74.8435 kg

DRUGS (11)
  1. AMOXICILLIN [Suspect]
     Indication: ABDOMINAL PAIN UPPER
     Dosage: 4-8 1 DOSE; 4-9 2 DOSES
     Dates: start: 20090408, end: 20090409
  2. AMOXICILLIN [Suspect]
     Indication: EAR DISORDER
     Dosage: 4-8 1 DOSE; 4-9 2 DOSES
     Dates: start: 20090408, end: 20090409
  3. AMOXICILLIN [Suspect]
     Indication: LYMPHADENOPATHY
     Dosage: 4-8 1 DOSE; 4-9 2 DOSES
     Dates: start: 20090408, end: 20090409
  4. AMOXICILLIN [Suspect]
     Indication: MALAISE
     Dosage: 4-8 1 DOSE; 4-9 2 DOSES
     Dates: start: 20090408, end: 20090409
  5. AMOXICILLIN [Suspect]
     Indication: OROPHARYNGEAL PAIN
     Dosage: 4-8 1 DOSE; 4-9 2 DOSES
     Dates: start: 20090408, end: 20090409
  6. AMOXICILLIN [Suspect]
     Indication: VOMITING
     Dosage: 4-8 1 DOSE; 4-9 2 DOSES
     Dates: start: 20090408, end: 20090409
  7. PREDNISONE [Concomitant]
  8. ALLEGRA [Concomitant]
  9. ZANTAC [Concomitant]
  10. ZYRTEC [Concomitant]
  11. BENADRYL [Concomitant]

REACTIONS (8)
  - ABDOMINAL PAIN UPPER [None]
  - ARTHRALGIA [None]
  - BLOOD PRESSURE INCREASED [None]
  - DRUG HYPERSENSITIVITY [None]
  - HAEMATOCHEZIA [None]
  - IMPAIRED WORK ABILITY [None]
  - PAIN IN EXTREMITY [None]
  - WHITE BLOOD CELL COUNT INCREASED [None]
